FAERS Safety Report 17186186 (Version 1)
Quarter: 2019Q4

REPORT INFORMATION
  Report Type: Spontaneous
  Country: SE (occurrence: SE)
  Receive Date: 20191220
  Receipt Date: 20191220
  Transmission Date: 20200122
  Serious: Yes (Hospitalization)
  Sender: FDA-Public Use
  Company Number: SE-MYLANLABS-2019M1126666

PATIENT
  Age: 18 Year
  Sex: Female
  Weight: 45 kg

DRUGS (2)
  1. LERGIGAN (PROMETHAZINE) [Suspect]
     Active Substance: PROMETHAZINE HYDROCHLORIDE
     Dosage: 12 ST A 25 MG
     Route: 048
     Dates: start: 20190527, end: 20190527
  2. LERGIGAN (PROMETHAZINE) [Suspect]
     Active Substance: PROMETHAZINE HYDROCHLORIDE
     Indication: PRODUCT USED FOR UNKNOWN INDICATION
     Dosage: 57 TABLETTER A 50 MG
     Route: 048
     Dates: start: 20190527, end: 20190527

REACTIONS (10)
  - Psychotic disorder [Unknown]
  - Mydriasis [Unknown]
  - Agitation [Unknown]
  - Intentional self-injury [Unknown]
  - Dyskinesia [Unknown]
  - Tachycardia [Unknown]
  - Depressed level of consciousness [Unknown]
  - Disorientation [Unknown]
  - Intentional overdose [Unknown]
  - Akathisia [Unknown]

NARRATIVE: CASE EVENT DATE: 20190527
